FAERS Safety Report 7930727-6 (Version None)
Quarter: 2011Q4

REPORT INFORMATION
  Report Type: 
  Country: None (occurrence: None)
  Receive Date: 20111121
  Receipt Date: 20111111
  Transmission Date: 20120403
  Serious: Yes (Hospitalization)
  Sender: FDA-Public Use
  Company Number: US-GLAXOSMITHKLINE-A0784432A

PATIENT
  Age: 52 Year
  Sex: Male
  Weight: 72.7 kg

DRUGS (8)
  1. AVANDIA [Suspect]
     Indication: DIABETES MELLITUS
     Dosage: 8MG PER DAY
     Route: 048
     Dates: start: 19990701, end: 20070401
  2. METOPROLOL TARTRATE [Concomitant]
  3. VYTORIN [Concomitant]
  4. ZETIA [Concomitant]
  5. COZAAR [Concomitant]
  6. ACTOS [Concomitant]
  7. METFORMIN HCL [Concomitant]
  8. ALTACE [Concomitant]

REACTIONS (3)
  - CORONARY ARTERY DISEASE [None]
  - AORTIC STENOSIS [None]
  - MYOCARDIAL INFARCTION [None]
